FAERS Safety Report 15083839 (Version 2)
Quarter: 2018Q4

REPORT INFORMATION
  Report Type: Spontaneous
  Country: US (occurrence: US)
  Receive Date: 20180628
  Receipt Date: 20181212
  Transmission Date: 20190204
  Serious: Yes (Disabling)
  Sender: FDA-Public Use
  Company Number: US-OTSUKA-2018_015789

PATIENT
  Sex: Male

DRUGS (3)
  1. ABILIFY [Suspect]
     Active Substance: ARIPIPRAZOLE
     Indication: BIPOLAR DISORDER
     Dosage: 2 MG, QD
     Route: 065
     Dates: start: 2011
  2. ABILIFY [Suspect]
     Active Substance: ARIPIPRAZOLE
     Indication: DEMENTIA
     Dosage: 5 MG, QD
     Route: 065
     Dates: end: 2017
  3. ARIPIPRAZOLE. [Concomitant]
     Active Substance: ARIPIPRAZOLE
     Indication: PRODUCT USED FOR UNKNOWN INDICATION
     Dosage: UNK
     Route: 065
     Dates: start: 20150527

REACTIONS (15)
  - Compulsive shopping [Recovered/Resolved]
  - Economic problem [Unknown]
  - Product use in unapproved indication [Unknown]
  - Emotional distress [Unknown]
  - Disability [Unknown]
  - Theft [Recovered/Resolved]
  - Pain [Unknown]
  - Bankruptcy [Unknown]
  - Condition aggravated [Unknown]
  - Shoplifting [Recovered/Resolved]
  - Injury [Unknown]
  - Anhedonia [Unknown]
  - Anxiety [Unknown]
  - Gambling disorder [Recovering/Resolving]
  - Condition aggravated [Recovering/Resolving]

NARRATIVE: CASE EVENT DATE: 2011
